FAERS Safety Report 9206158 (Version 1)
Quarter: 2013Q2

REPORT INFORMATION
  Report Type: Spontaneous
  Country: US (occurrence: None)
  Receive Date: 20130401
  Receipt Date: 20130401
  Transmission Date: 20140414
  Serious: Yes (Hospitalization)
  Sender: FDA-Public Use
  Company Number: ALK-2012-001096

PATIENT
  Age: 43 Year
  Sex: Female
  Weight: 68.9 kg

DRUGS (12)
  1. VIVITROL [Suspect]
     Route: 030
     Dates: start: 20121011, end: 20121012
  2. VIVITROL [Suspect]
     Route: 030
     Dates: start: 20121011, end: 20121012
  3. NAPROXEN [Concomitant]
  4. GABAPENTIN [Concomitant]
  5. FLUOXETINE [Concomitant]
  6. RISPERDAL [Concomitant]
  7. OXYBUTYNIN [Concomitant]
  8. PRAMIPEXOLE [Concomitant]
  9. BUSPIRONE [Concomitant]
  10. PROPRANOLOL [Concomitant]
  11. DIAZEPAM [Concomitant]
  12. IBUPROFEN [Concomitant]

REACTIONS (12)
  - Injection site necrosis [None]
  - Injection site mass [None]
  - Injection site anaesthesia [None]
  - Scar [None]
  - Injection site reaction [None]
  - Injection site pain [None]
  - Injection site erythema [None]
  - Injection site induration [None]
  - Injection site swelling [None]
  - Injection site warmth [None]
  - Injection site infection [None]
  - Injection site cellulitis [None]
